FAERS Safety Report 20434583 (Version 1)
Quarter: 2022Q1

REPORT INFORMATION
  Report Type: Report from Study
  Country: DE (occurrence: DE)
  Receive Date: 20220206
  Receipt Date: 20220206
  Transmission Date: 20220423
  Serious: Yes (Death, Hospitalization)
  Sender: FDA-Public Use
  Company Number: DE-NOVARTISPH-NVSC2022DE024217

PATIENT
  Age: 83 Year
  Sex: Female

DRUGS (12)
  1. RITUXIMAB [Suspect]
     Active Substance: RITUXIMAB
     Indication: Rheumatoid arthritis
     Dosage: 1000 MG (SASP 2000)
     Route: 065
     Dates: start: 201903
  2. RITUXIMAB [Suspect]
     Active Substance: RITUXIMAB
     Dosage: 1000 MG (SASP 2000)
     Route: 065
     Dates: start: 202003
  3. METHOTREXATE [Suspect]
     Active Substance: METHOTREXATE
     Indication: Product used for unknown indication
     Dosage: UNK
     Route: 065
  4. SULFASALAZINE [Suspect]
     Active Substance: SULFASALAZINE
     Indication: Product used for unknown indication
     Dosage: UNK
     Route: 065
  5. MABTHERA [Concomitant]
     Active Substance: RITUXIMAB
     Indication: Product used for unknown indication
     Dosage: 1000 MG (SASP 2000)
     Route: 065
     Dates: start: 201508
  6. MABTHERA [Concomitant]
     Active Substance: RITUXIMAB
     Dosage: 1000 MG (SASP 2000)
     Route: 065
     Dates: start: 201608
  7. MABTHERA [Concomitant]
     Active Substance: RITUXIMAB
     Dosage: 1000 MG (SASP 2000)
     Route: 065
     Dates: start: 201612
  8. MABTHERA [Concomitant]
     Active Substance: RITUXIMAB
     Dosage: 1000 MG (SASP 2000)
     Route: 065
     Dates: start: 201801
  9. REMICADE [Concomitant]
     Active Substance: INFLIXIMAB
     Indication: Product used for unknown indication
     Dosage: 300 MG (MTX 7,5/SASP 1000)
     Route: 065
     Dates: start: 201402
  10. REMICADE [Concomitant]
     Active Substance: INFLIXIMAB
     Dosage: 300 MG (MTX 7,5/SASP 1000)
     Route: 065
  11. REMICADE [Concomitant]
     Active Substance: INFLIXIMAB
     Dosage: 300 MG (MTX 7,5/SASP 1000)
     Route: 065
     Dates: end: 201411
  12. SIMPONI [Concomitant]
     Active Substance: GOLIMUMAB
     Indication: Product used for unknown indication
     Dosage: 50 MG
     Route: 065
     Dates: start: 201502, end: 201507

REACTIONS (3)
  - Death [Fatal]
  - COVID-19 [Unknown]
  - Dyspnoea [Unknown]

NARRATIVE: CASE EVENT DATE: 20210301
